FAERS Safety Report 5281954-0 (Version None)
Quarter: 2007Q1

REPORT INFORMATION
  Report Type: 
  Country: None (occurrence: None)
  Receive Date: 20070330
  Receipt Date: 20070312
  Transmission Date: 20070707
  Serious: Yes (Other)
  Sender: FDA-Public Use
  Company Number: US-SANOFI-SYNTHELABO-A03200702324

PATIENT
  Sex: Male

DRUGS (12)
  1. ACTIQ [Concomitant]
     Dosage: UNK
     Route: 065
     Dates: start: 20040101, end: 20050301
  2. DURAGESIC-100 [Concomitant]
     Dosage: UNK
     Route: 065
     Dates: start: 20040101, end: 20050301
  3. LANTUS [Concomitant]
     Dosage: UNK
     Route: 065
  4. SYNTHROID [Concomitant]
     Dosage: UNK
     Route: 065
  5. NORTRIPTYLINE HCL [Concomitant]
     Dosage: UNK
     Route: 065
     Dates: start: 20040101
  6. COUMADIN [Concomitant]
     Dosage: UNK
     Route: 065
     Dates: start: 20040101
  7. NEURONTIN [Concomitant]
     Dosage: UNK
     Route: 065
     Dates: start: 20040101
  8. DILANTIN [Concomitant]
     Dosage: UNK
     Route: 065
     Dates: start: 20040101
  9. ZOFRAN [Concomitant]
     Dosage: UNK
     Route: 030
     Dates: start: 20040101
  10. AMBIEN [Suspect]
     Indication: INSOMNIA
     Route: 048
     Dates: start: 20040101
  11. AMBIEN [Suspect]
     Route: 048
     Dates: end: 20050101
  12. AMBIEN [Suspect]
     Dosage: UNK
     Route: 048
     Dates: start: 20060101, end: 20060201

REACTIONS (5)
  - ABNORMAL BEHAVIOUR [None]
  - AMNESIA [None]
  - EATING DISORDER [None]
  - ROAD TRAFFIC ACCIDENT [None]
  - SLEEP WALKING [None]
